FAERS Safety Report 8603342-9 (Version None)
Quarter: 2012Q3

REPORT INFORMATION
  Report Type: 
  Country: None (occurrence: None)
  Receive Date: 20120817
  Receipt Date: 20120808
  Transmission Date: 20120928
  Serious: Yes (Hospitalization)
  Sender: FDA-Public Use
  Company Number: JP-EISAI INC-E2020-11160-SPO-JP

PATIENT
  Age: 76 Year
  Sex: Female

DRUGS (12)
  1. ARICEPT [Suspect]
     Route: 048
  2. CINACALCET HYDROCHLORIDE [Concomitant]
  3. ARICEPT [Suspect]
     Route: 048
  4. DEPAS [Concomitant]
  5. BISOPROLOL FUMARATE [Concomitant]
  6. TOLEDOMIN [Concomitant]
  7. ZETIA [Concomitant]
  8. WARFARIN SODIUM [Concomitant]
  9. RABEPRAZOLE SODIUM [Concomitant]
  10. EXFORGE [Concomitant]
  11. ALFAROL [Concomitant]
  12. LEVOTHYROXINE SODIUM [Concomitant]

REACTIONS (1)
  - LARGE INTESTINE PERFORATION [None]
